FAERS Safety Report 10610464 (Version 1)
Quarter: 2014Q4

REPORT INFORMATION
  Report Type: Spontaneous
  Country: CA (occurrence: None)
  Receive Date: 20141124
  Receipt Date: 20141124
  Transmission Date: 20150529
  Serious: Yes (Hospitalization)
  Sender: FDA-Public Use
  Company Number: CA-017724

PATIENT
  Age: 51 Year
  Sex: Female

DRUGS (3)
  1. FLEET [Suspect]
     Active Substance: BISACODYL\GLYCERIN\MINERAL OIL\SODIUM PHOSPHATE, DIBASIC\SODIUM PHOSPHATE, MONOBASIC
     Indication: BOWEL PREPARATION
  2. PICO-SALAX [Suspect]
     Active Substance: CITRIC ACID MONOHYDRATE\MAGNESIUM OXIDE\SODIUM PICOSULFATE
     Indication: BOWEL PREPARATION
     Dosage: 1 DF TOTAL, 1 SACHET ORAL
     Route: 048
     Dates: start: 20141107, end: 20141107
  3. PREVACID [Concomitant]
     Active Substance: LANSOPRAZOLE

REACTIONS (4)
  - Vomiting [None]
  - Drug ineffective [None]
  - Tremor [None]
  - Off label use [None]

NARRATIVE: CASE EVENT DATE: 20141107
